FAERS Safety Report 12948296 (Version 1)
Quarter: 2016Q4

REPORT INFORMATION
  Report Type: Spontaneous
  Country: US (occurrence: US)
  Receive Date: 20161117
  Receipt Date: 20161117
  Transmission Date: 20170207
  Serious: Yes (Life-Threatening, Hospitalization, Other)
  Sender: FDA-Public Use
  Company Number: US-ZYDUS-012661

PATIENT
  Age: 64 Year
  Sex: Female

DRUGS (3)
  1. AZATHIOPRINE. [Suspect]
     Active Substance: AZATHIOPRINE
     Indication: AUTOIMMUNE NEUROPATHY
     Dosage: 250 MG DAILY IN DIVIDED DOSES
     Route: 065
  2. AZATHIOPRINE. [Suspect]
     Active Substance: AZATHIOPRINE
     Indication: AUTOIMMUNE NEUROPATHY
     Route: 065
  3. IMMUNOGLOBULIN [Concomitant]
     Active Substance: HUMAN IMMUNOGLOBULIN G
     Indication: AUTOIMMUNE NEUROPATHY
     Route: 042

REACTIONS (13)
  - Abnormal loss of weight [Recovering/Resolving]
  - Night sweats [Recovering/Resolving]
  - Aspartate aminotransferase increased [Recovering/Resolving]
  - Epstein-Barr virus infection [Recovering/Resolving]
  - Cough [Recovering/Resolving]
  - Malaise [Recovering/Resolving]
  - Angiocentric lymphoma [Recovering/Resolving]
  - Pyrexia [Recovering/Resolving]
  - Normochromic normocytic anaemia [Recovering/Resolving]
  - Off label use [Recovered/Resolved]
  - Lymphadenopathy mediastinal [Recovering/Resolving]
  - Hepatic steatosis [Recovering/Resolving]
  - Splenomegaly [Recovering/Resolving]
